FAERS Safety Report 9833124 (Version 1)
Quarter: 2014Q1

REPORT INFORMATION
  Report Type: Spontaneous
  Country: GB (occurrence: GB)
  Receive Date: 20140121
  Receipt Date: 20140121
  Transmission Date: 20141002
  Serious: Yes (Hospitalization, Other)
  Sender: FDA-Public Use
  Company Number: GB-PFIZER INC-2014017031

PATIENT
  Age: 68 Year
  Sex: Female
  Weight: 60 kg

DRUGS (11)
  1. DEXAMETHASONE SODIUM PHOSPHATE [Suspect]
     Indication: PLASMA CELL MYELOMA
     Dosage: 40 MG, WEEKLY
     Route: 065
     Dates: start: 20121114, end: 20130201
  2. REVLIMID [Suspect]
     Indication: PLASMA CELL MYELOMA
     Dosage: 25 MG, 1X/DAY FOR 21 DAYS PER 28 DAY CYCLE
     Route: 048
     Dates: start: 20121114, end: 20130122
  3. REVLIMID [Suspect]
     Dosage: UNK
     Route: 048
     Dates: start: 20130322
  4. AMITRIPTYLINE [Concomitant]
     Indication: NEURALGIA
     Dosage: 20MG
  5. ASPIRINE [Concomitant]
     Indication: THROMBOSIS PROPHYLAXIS
     Dosage: 75 MG, WEEKLY
     Route: 065
  6. CALCEOS [Concomitant]
     Indication: MINERAL SUPPLEMENTATION
     Dosage: 2 / 1DAYS
     Route: 065
  7. OMEPRAZOLE [Concomitant]
     Indication: PROPHYLAXIS
     Dosage: 20 MG, WEEKLY
     Route: 065
  8. PARACETAMOL [Concomitant]
     Indication: PYREXIA
     Dosage: 1 G
     Route: 065
  9. SALBUTAMOL [Concomitant]
     Indication: ASTHMA
     Dosage: 200 MG
     Route: 065
  10. SERETIDE [Concomitant]
     Indication: ASTHMA
     Dosage: 250 MG
     Route: 065
  11. ZOMETA [Concomitant]
     Indication: PLASMA CELL MYELOMA
     Dosage: 4MG 4 / 1WEEKS
     Route: 065
     Dates: start: 20110816

REACTIONS (2)
  - Lower respiratory tract infection [Recovered/Resolved]
  - Infective exacerbation of bronchiectasis [Recovered/Resolved]
